FAERS Safety Report 5474298-5 (Version None)
Quarter: 2007Q4

REPORT INFORMATION
  Report Type: 
  Country: None (occurrence: None)
  Receive Date: 20071002
  Receipt Date: 20070619
  Transmission Date: 20080405
  Serious: No
  Sender: FDA-Public Use
  Company Number: US-ASTRAZENECA-2007UW14643

PATIENT
  Sex: Female

DRUGS (2)
  1. ARIMIDEX [Suspect]
     Indication: BREAST CANCER
     Route: 048
  2. TAMOXIFEN CITRATE [Concomitant]

REACTIONS (3)
  - ADVERSE EVENT [None]
  - OSTEOPOROSIS [None]
  - THYROID DISORDER [None]
